FAERS Safety Report 8091776-3 (Version None)
Quarter: 2012Q1

REPORT INFORMATION
  Report Type: 
  Country: None (occurrence: None)
  Receive Date: 20120129
  Receipt Date: 20111104
  Transmission Date: 20120608
  Serious: No
  Sender: FDA-Public Use
  Company Number: US-ABBOTT-11P-163-0871521-00

PATIENT
  Age: 33 Year
  Sex: Female

DRUGS (3)
  1. PRILOSEC [Concomitant]
     Indication: GASTROOESOPHAGEAL REFLUX DISEASE
     Dosage: DAILY
     Route: 048
  2. HUMIRA [Suspect]
     Indication: PSORIASIS
     Dates: start: 20080101
  3. HUMIRA [Suspect]
     Dates: start: 20110401

REACTIONS (10)
  - PYREXIA [None]
  - STREPTOCOCCAL INFECTION [None]
  - MASS [None]
  - RASH PUSTULAR [None]
  - INFLUENZA [None]
  - STAPHYLOCOCCAL INFECTION [None]
  - MALAISE [None]
  - FATIGUE [None]
  - CYANOSIS [None]
  - PSORIASIS [None]
